FAERS Safety Report 16831523 (Version 1)
Quarter: 2019Q3

REPORT INFORMATION
  Report Type: Spontaneous
  Country: CZ (occurrence: CZ)
  Receive Date: 20190920
  Receipt Date: 20190920
  Transmission Date: 20191005
  Serious: Yes (Hospitalization)
  Sender: FDA-Public Use
  Company Number: CZ-TEVA-2019-CZ-1109649

PATIENT
  Age: 36 Year
  Sex: Female

DRUGS (4)
  1. OXALIPLATIN TEVA [Suspect]
     Active Substance: OXALIPLATIN
     Route: 042
  2. FOLINIC ACID [Concomitant]
     Active Substance: LEUCOVORIN
     Indication: ADENOCARCINOMA OF APPENDIX
  3. FLUOROURACIL. [Concomitant]
     Active Substance: FLUOROURACIL
     Indication: ADENOCARCINOMA OF APPENDIX
  4. OXALIPLATIN TEVA [Suspect]
     Active Substance: OXALIPLATIN
     Indication: ADENOCARCINOMA OF APPENDIX
     Dosage: IN A 5TH CYCLE OF FOLFOX CHEMOTHERAPY?INFUSION STOPPED AFTER 25% OF PRESCRIBED DOSE OF 139MG
     Route: 042
     Dates: start: 20190830, end: 20190830

REACTIONS (8)
  - Abdominal pain [Recovered/Resolved]
  - Chest discomfort [Recovered/Resolved]
  - Tachycardia [Recovered/Resolved]
  - Asthenia [Recovered/Resolved]
  - Hypertension [Recovered/Resolved]
  - Tachypnoea [Recovered/Resolved]
  - Hyperhidrosis [Recovered/Resolved]
  - Dyspnoea [Recovered/Resolved]

NARRATIVE: CASE EVENT DATE: 20190830
